FAERS Safety Report 14456096 (Version 1)
Quarter: 2018Q1

REPORT INFORMATION
  Report Type: Spontaneous
  Country: PT (occurrence: PT)
  Receive Date: 20180130
  Receipt Date: 20180130
  Transmission Date: 20180509
  Serious: Yes (Disabling, Other)
  Sender: FDA-Public Use
  Company Number: PT-CIPLA LTD.-2018PT01944

PATIENT

DRUGS (1)
  1. TOPIRAMATE. [Suspect]
     Active Substance: TOPIRAMATE
     Indication: OBESITY
     Dosage: 75 MG, DAILY, 1 COMPRIMIDO 3 VEZES/DIA.
     Route: 048
     Dates: start: 20171101, end: 20171111

REACTIONS (2)
  - Acute myopia [Recovered/Resolved]
  - Product use in unapproved indication [Unknown]

NARRATIVE: CASE EVENT DATE: 20171111
